FAERS Safety Report 7997923-3 (Version None)
Quarter: 2011Q4

REPORT INFORMATION
  Report Type: 
  Country: None (occurrence: None)
  Receive Date: 20111221
  Receipt Date: 20111215
  Transmission Date: 20120403
  Serious: Yes (Other)
  Sender: FDA-Public Use
  Company Number: PHHY2011BE109262

PATIENT
  Age: 74 Year
  Sex: Female

DRUGS (8)
  1. VITAMIN D [Concomitant]
     Indication: OSTEOPOROSIS
  2. BENZODIAZEPINES [Concomitant]
  3. CALCIUM [Concomitant]
     Indication: OSTEOPOROSIS
  4. ANTIHYPERTENSIVE DRUGS [Concomitant]
  5. TOVIAZ [Concomitant]
  6. URI CRAN [Concomitant]
     Indication: URINARY TRACT DISORDER
  7. ZOLEDRONOC ACID [Suspect]
     Indication: OSTEOPOROSIS
     Dosage: 5 MG
     Route: 042
     Dates: start: 20101001
  8. LIPITOR [Concomitant]

REACTIONS (3)
  - BACK PAIN [None]
  - BONE LESION [None]
  - OSTEOSCLEROSIS [None]
